APPROVED DRUG PRODUCT: IVERMECTIN
Active Ingredient: IVERMECTIN
Strength: 3MG
Dosage Form/Route: TABLET;ORAL
Application: A204154 | Product #001 | TE Code: AB
Applicant: EDENBRIDGE PHARMACEUTICALS LLC
Approved: Oct 24, 2014 | RLD: No | RS: No | Type: RX